FAERS Safety Report 10049005 (Version 2)
Quarter: 2014Q2

REPORT INFORMATION
  Report Type: Spontaneous
  Country: US (occurrence: US)
  Receive Date: 20140331
  Receipt Date: 20140617
  Transmission Date: 20141212
  Serious: No
  Sender: FDA-Public Use
  Company Number: US-009507513-1403USA013423

PATIENT
  Age: 87 Year
  Sex: Male
  Weight: 72.56 kg

DRUGS (4)
  1. ZEGERID OTC CAPSULES [Suspect]
     Indication: HYPERCHLORHYDRIA
     Dosage: UNK, UNKNOWN
     Route: 048
     Dates: start: 20140323, end: 20140324
  2. MIRTAZAPINE [Concomitant]
     Indication: BIPOLAR DISORDER
     Dosage: 45 MG, UNKNOWN
  3. TAMSULOSIN HYDROCHLORIDE [Concomitant]
     Indication: BENIGN PROSTATIC HYPERPLASIA
     Dosage: 0.4 MG, UNKNOWN
  4. OMEPRAZOLE [Concomitant]
     Indication: GASTROOESOPHAGEAL REFLUX DISEASE
     Dosage: UNK, UNKNOWN

REACTIONS (2)
  - Wrong technique in drug usage process [Unknown]
  - Drug effect decreased [Unknown]
